FAERS Safety Report 6788438-9 (Version None)
Quarter: 2010Q2

REPORT INFORMATION
  Report Type: 
  Country: None (occurrence: None)
  Receive Date: 20100623
  Receipt Date: 20080303
  Transmission Date: 20101027
  Serious: No
  Sender: FDA-Public Use
  Company Number: US-PFIZER INC-2008019803

PATIENT
  Sex: Female
  Weight: 77.3 kg

DRUGS (3)
  1. GEODON [Suspect]
     Indication: BIPOLAR DISORDER
     Dates: start: 20070101
  2. PROZAC [Concomitant]
  3. ATIVAN [Concomitant]

REACTIONS (3)
  - INCORRECT DOSE ADMINISTERED [None]
  - MENSTRUATION IRREGULAR [None]
  - WEIGHT INCREASED [None]
